FAERS Safety Report 23252295 (Version 1)
Quarter: 2023Q4

REPORT INFORMATION
  Report Type: Spontaneous
  Country: DE (occurrence: None)
  Receive Date: 20231201
  Receipt Date: 20231201
  Transmission Date: 20240110
  Serious: Yes (Other)
  Sender: FDA-Public Use
  Company Number: 2023A271935

PATIENT
  Age: 62 Year
  Sex: Female

DRUGS (10)
  1. FULVESTRANT [Suspect]
     Active Substance: FULVESTRANT
     Route: 030
  2. TAMOXIFEN [Suspect]
     Active Substance: TAMOXIFEN
     Route: 048
  3. XGEVA [Concomitant]
     Active Substance: DENOSUMAB
     Dates: start: 201701
  4. AFINITOR [Concomitant]
     Active Substance: EVEROLIMUS
     Dates: start: 201802
  5. DOXORUBICIN HYDROCHLORIDE [Concomitant]
     Active Substance: DOXORUBICIN HYDROCHLORIDE
     Dates: start: 201811
  6. ABRAXANE [Concomitant]
     Active Substance: PACLITAXEL
     Dates: start: 201901
  7. HALAVEN [Concomitant]
     Active Substance: ERIBULIN MESYLATE
     Dates: start: 202001
  8. CARBOPLATIN [Concomitant]
     Active Substance: CARBOPLATIN
     Dates: start: 202011
  9. CAPECITABINE [Concomitant]
     Active Substance: CAPECITABINE
     Dates: start: 202102
  10. GEMCITABINE [Concomitant]
     Active Substance: GEMCITABINE
     Dates: start: 202102

REACTIONS (5)
  - Leukopenia [Unknown]
  - Breast cancer recurrent [Unknown]
  - Malignant neoplasm progression [Unknown]
  - Nausea [Unknown]
  - Vomiting [Unknown]
